FAERS Safety Report 7334076-9 (Version None)
Quarter: 2011Q1

REPORT INFORMATION
  Report Type: 
  Country: None (occurrence: None)
  Receive Date: 20110307
  Receipt Date: 20110301
  Transmission Date: 20110831
  Serious: No
  Sender: FDA-Public Use
  Company Number: US-BAYER-2011-018914

PATIENT
  Sex: Male

DRUGS (2)
  1. BETAFERON [Suspect]
     Dosage: UNK
     Dates: start: 20110222
  2. BETAFERON [Suspect]
     Indication: MULTIPLE SCLEROSIS RELAPSE
     Dosage: 2 MIU, QOD
     Route: 058
     Dates: start: 20090823, end: 20090901

REACTIONS (1)
  - VERTIGO [None]
